FAERS Safety Report 5871336-2 (Version None)
Quarter: 2008Q3

REPORT INFORMATION
  Report Type: 
  Country: None (occurrence: None)
  Receive Date: 20080905
  Receipt Date: 20080829
  Transmission Date: 20090109
  Serious: Yes (Death, Life-Threatening, Hospitalization)
  Sender: FDA-Public Use
  Company Number: CH-WYE-G02076208

PATIENT
  Age: 30 Year
  Sex: Male
  Weight: 70 kg

DRUGS (5)
  1. EFFEXOR [Suspect]
     Route: 048
     Dates: start: 20080507, end: 20080507
  2. CHARCOAL, ACTIVATED [Concomitant]
     Dosage: DOSE UNKNOWN
     Route: 048
     Dates: start: 20080508, end: 20080508
  3. PROPOFOL [Interacting]
     Indication: EPILEPSY
     Dosage: DOSE UNKNOWN
     Route: 042
     Dates: start: 20080508, end: 20080508
  4. PHENYTOIN [Interacting]
     Indication: EPILEPSY
     Route: 042
     Dates: start: 20080508, end: 20080508
  5. RIVOTRIL [Interacting]
     Indication: EPILEPSY
     Dosage: DOSE UNKNOWN
     Route: 042
     Dates: start: 20080508, end: 20080508

REACTIONS (12)
  - AGGRESSION [None]
  - AGITATION [None]
  - COMA [None]
  - COMPLETED SUICIDE [None]
  - DRUG INTERACTION [None]
  - ELECTROCARDIOGRAM QRS COMPLEX PROLONGED [None]
  - GRAND MAL CONVULSION [None]
  - HYPOTENSION [None]
  - INTENTIONAL OVERDOSE [None]
  - OXYGEN SATURATION DECREASED [None]
  - VENTRICULAR FIBRILLATION [None]
  - VENTRICULAR TACHYCARDIA [None]
